FAERS Safety Report 4512525-9 (Version None)
Quarter: 2004Q4

REPORT INFORMATION
  Report Type: 
  Country: None (occurrence: None)
  Receive Date: 20041124
  Receipt Date: 20041108
  Transmission Date: 20050328
  Serious: Yes (Hospitalization)
  Sender: FDA-Public Use
  Company Number: USA030227832

PATIENT
  Age: 71 Year
  Sex: Female
  Weight: 55 kg

DRUGS (2)
  1. EVISTA [Suspect]
     Indication: OSTEOPENIA
     Dates: start: 20010101
  2. FORTEO [Suspect]
     Indication: OSTEOPOROSIS
     Dosage: 20 UG DAY
     Dates: start: 20040829

REACTIONS (16)
  - ASTHENIA [None]
  - BLOOD CALCIUM DECREASED [None]
  - CONDITION AGGRAVATED [None]
  - CONSTIPATION [None]
  - DISCOMFORT [None]
  - GALLBLADDER DISORDER [None]
  - GASTROOESOPHAGEAL REFLUX DISEASE [None]
  - HERNIA [None]
  - HERNIA PAIN [None]
  - IMPAIRED HEALING [None]
  - INJECTION SITE ERYTHEMA [None]
  - PHARMACEUTICAL PRODUCT COMPLAINT [None]
  - POST PROCEDURAL COMPLICATION [None]
  - STOMACH DISCOMFORT [None]
  - TREATMENT NONCOMPLIANCE [None]
  - TREMOR [None]
